FAERS Safety Report 10137453 (Version 1)
Quarter: 2014Q2

REPORT INFORMATION
  Report Type: Spontaneous
  Country: US (occurrence: None)
  Receive Date: 20140428
  Receipt Date: 20140428
  Transmission Date: 20141212
  Serious: Yes (Other)
  Sender: FDA-Public Use
  Company Number: None

PATIENT
  Age: 45 Year
  Sex: Male
  Weight: 83.92 kg

DRUGS (1)
  1. IRBESARTAN [Suspect]
     Indication: BLOOD PRESSURE SYSTOLIC INCREASED
     Route: 048
     Dates: start: 20140417, end: 20140427

REACTIONS (6)
  - Myalgia [None]
  - Arthralgia [None]
  - Product substitution issue [None]
  - Product substitution issue [None]
  - Product quality issue [None]
  - Product formulation issue [None]
